FAERS Safety Report 11619825 (Version 1)
Quarter: 2015Q4

REPORT INFORMATION
  Report Type: Spontaneous
  Country: US (occurrence: US)
  Receive Date: 20151012
  Receipt Date: 20151012
  Transmission Date: 20160304
  Serious: Yes (Other)
  Sender: FDA-Public Use
  Company Number: US-PFIZER INC-2015336027

PATIENT
  Sex: Female

DRUGS (1)
  1. HYDROCORTISONE. [Suspect]
     Active Substance: HYDROCORTISONE
     Dosage: UNK

REACTIONS (6)
  - Haemorrhage [Unknown]
  - Product quality issue [Unknown]
  - Blindness [Unknown]
  - Hypoacusis [Unknown]
  - International normalised ratio abnormal [Unknown]
  - Product lot number issue [Unknown]
